FAERS Safety Report 20305192 (Version 1)
Quarter: 2022Q1

REPORT INFORMATION
  Report Type: Spontaneous
  Country: FR (occurrence: FR)
  Receive Date: 20220106
  Receipt Date: 20220106
  Transmission Date: 20220424
  Serious: Yes (Death)
  Sender: FDA-Public Use
  Company Number: None

PATIENT
  Age: 91 Year
  Sex: Female
  Weight: 58.9 kg

DRUGS (5)
  1. ARIXTRA [Suspect]
     Active Substance: FONDAPARINUX SODIUM
     Indication: Acute coronary syndrome
     Dosage: UNK (1 SERINGUE/JOUR)
     Route: 058
     Dates: start: 20211106, end: 20211118
  2. PLAVIX [Suspect]
     Active Substance: CLOPIDOGREL BISULFATE
     Indication: Acute coronary syndrome
     Dosage: UNK (1 COMPRIME/JOUR)
     Route: 048
     Dates: start: 20211107, end: 20211118
  3. KARDEGIC [Suspect]
     Active Substance: ASPIRIN DL-LYSINE
     Indication: Acute coronary syndrome
     Dosage: UNK (1 SACHET/JOUR)
     Route: 048
     Dates: start: 20211116, end: 20211118
  4. ASPIRIN DL-LYSINE [Suspect]
     Active Substance: ASPIRIN DL-LYSINE
     Indication: Acute coronary syndrome
     Dosage: UNK (125MG/JOUR)
     Route: 042
     Dates: start: 20211109, end: 20211115
  5. OXAZEPAM [Concomitant]
     Active Substance: OXAZEPAM
     Dosage: UNK (1 COMPRIME LE SOIR)
     Route: 048
     Dates: start: 20211106, end: 20211117

REACTIONS (2)
  - Subdural haematoma [Fatal]
  - Intraventricular haemorrhage [Fatal]

NARRATIVE: CASE EVENT DATE: 20211119
